FAERS Safety Report 7076459-0 (Version None)
Quarter: 2010Q4

REPORT INFORMATION
  Report Type: 
  Country: None (occurrence: None)
  Receive Date: 20101022
  Receipt Date: 20101008
  Transmission Date: 20110411
  Serious: Yes (Other)
  Sender: FDA-Public Use
  Company Number: JPI-P-012500

PATIENT
  Age: 43 Year
  Sex: Female
  Weight: 99.7913 kg

DRUGS (9)
  1. XYREM [Suspect]
     Indication: CATAPLEXY
     Dosage: 4.5 GM (2.25 GM, 2 IN 1 D), ORAL; 9 GM (4.5 GM, 2 IN 1 D), ORAL
     Route: 048
     Dates: start: 20100801, end: 20100101
  2. XYREM [Suspect]
     Indication: CATAPLEXY
     Dosage: 4.5 GM (2.25 GM, 2 IN 1 D), ORAL; 9 GM (4.5 GM, 2 IN 1 D), ORAL
     Route: 048
     Dates: start: 20100101
  3. IRBESARTAN AND HYDROCHLOROTHIAZIDE [Concomitant]
  4. METOPROLOL TARTRATE [Concomitant]
  5. ARMODAFINIL [Concomitant]
  6. SERTRALINE HYDROCHLORIDE [Concomitant]
  7. LORATADINE [Concomitant]
  8. OMEPRAZOLE [Concomitant]
  9. ORAL CONTRACEPTIVE NOS [Concomitant]

REACTIONS (2)
  - BLOOD PRESSURE INCREASED [None]
  - SUPRAVENTRICULAR TACHYCARDIA [None]
